FAERS Safety Report 8815068 (Version 2)
Quarter: 2012Q4

REPORT INFORMATION
  Report Type: 
  Country: US (occurrence: US)
  Receive Date: 20120928
  Receipt Date: 20121207
  Transmission Date: 20130627
  Serious: Yes (Other)
  Sender: FDA-Public Use
  Company Number: US-ROCHE-1129213

PATIENT
  Age: 53 Year
  Sex: Female

DRUGS (18)
  1. AVASTIN [Suspect]
     Indication: BREAST CANCER FEMALE
     Route: 042
     Dates: start: 20050706, end: 20050706
  2. XELODA [Suspect]
     Indication: PRODUCT USED FOR UNKNOWN INDICATION
     Route: 065
     Dates: end: 200406
  3. XELODA [Suspect]
     Route: 065
     Dates: start: 200407, end: 200410
  4. HERCEPTIN [Suspect]
     Indication: PRODUCT USED FOR UNKNOWN INDICATION
     Route: 065
     Dates: start: 19990107, end: 19990402
  5. HERCEPTIN [Suspect]
     Route: 065
     Dates: start: 199904, end: 200003
  6. HERCEPTIN [Suspect]
     Route: 065
     Dates: start: 200008, end: 200012
  7. HERCEPTIN [Suspect]
     Route: 065
     Dates: start: 200209, end: 200212
  8. TAXOL [Concomitant]
     Route: 065
     Dates: start: 19961217, end: 199704
  9. TAXOL [Concomitant]
     Route: 065
     Dates: start: 19990107, end: 19990402
  10. CYTOXAN [Concomitant]
     Route: 065
     Dates: start: 19961217, end: 199704
  11. ADRIAMYCIN [Concomitant]
     Route: 065
     Dates: start: 19961217, end: 199704
  12. CARBOPLATIN [Concomitant]
  13. CISPLATIN [Concomitant]
     Route: 065
     Dates: start: 20000512, end: 20000728
  14. GEMZAR [Concomitant]
     Route: 065
     Dates: start: 20000512, end: 20000728
  15. TAXOTERE [Concomitant]
  16. NAVELBINE [Concomitant]
     Route: 065
     Dates: start: 200302
  17. ABRAXANE [Concomitant]
     Route: 065
  18. ABRAXANE [Concomitant]
     Route: 065

REACTIONS (8)
  - Pleural effusion [Recovered/Resolved]
  - Pancreatitis [Recovered/Resolved]
  - Disease progression [Recovered/Resolved]
  - Hypertension [Recovered/Resolved]
  - Erythema [Recovered/Resolved]
  - Dyspnoea [Recovered/Resolved]
  - Ejection fraction decreased [Recovered/Resolved]
  - Abdominal discomfort [Recovered/Resolved]
